FAERS Safety Report 12355406 (Version 1)
Quarter: 2016Q2

REPORT INFORMATION
  Report Type: Spontaneous
  Country: US (occurrence: US)
  Receive Date: 20160511
  Receipt Date: 20160511
  Transmission Date: 20160815
  Serious: No
  Sender: FDA-Public Use
  Company Number: US-FRI-1000082480

PATIENT
  Age: 62 Year
  Sex: Male

DRUGS (4)
  1. FETZIMA [Suspect]
     Active Substance: LEVOMILNACIPRAN HYDROCHLORIDE
     Indication: DEPRESSION
     Dosage: 40MG
     Route: 048
  2. FETZIMA [Suspect]
     Active Substance: LEVOMILNACIPRAN HYDROCHLORIDE
     Dosage: 20MG
     Route: 048
     Dates: start: 20160105
  3. DILANTIN [Concomitant]
     Active Substance: PHENYTOIN
     Indication: EPILEPSY
     Dosage: 400MG
     Route: 048
  4. LISINOPRIL/HCTZ [Concomitant]
     Active Substance: HYDROCHLOROTHIAZIDE\LISINOPRIL
     Indication: HYPERTENSION
     Route: 048

REACTIONS (10)
  - Skin odour abnormal [Not Recovered/Not Resolved]
  - Paraesthesia [Not Recovered/Not Resolved]
  - Depressed mood [Not Recovered/Not Resolved]
  - Hyperhidrosis [Not Recovered/Not Resolved]
  - Drug ineffective [Not Recovered/Not Resolved]
  - Abnormal faeces [Not Recovered/Not Resolved]
  - Sinusitis [Recovered/Resolved]
  - Lethargy [Not Recovered/Not Resolved]
  - Somnolence [Not Recovered/Not Resolved]
  - Constipation [Not Recovered/Not Resolved]

NARRATIVE: CASE EVENT DATE: 201601
